FAERS Safety Report 24425182 (Version 1)
Quarter: 2024Q4

REPORT INFORMATION
  Report Type: Report from Study
  Country: US (occurrence: US)
  Receive Date: 20241010
  Receipt Date: 20241010
  Transmission Date: 20250115
  Serious: Yes (Hospitalization)
  Sender: AMGEN
  Company Number: US-AMGEN-USASL2024197043

PATIENT
  Sex: Female

DRUGS (1)
  1. AMJEVITA [Suspect]
     Active Substance: ADALIMUMAB-ATTO
     Indication: Rheumatoid arthritis
     Dosage: UNK UNK, Q2WK
     Route: 065
     Dates: end: 20240909

REACTIONS (9)
  - Nervousness [Unknown]
  - Asthenia [Unknown]
  - Dizziness [Unknown]
  - Vertigo [Unknown]
  - Rash [Unknown]
  - Illness [Not Recovered/Not Resolved]
  - Stomatitis [Unknown]
  - Lip exfoliation [Unknown]
  - Somnolence [Unknown]
